FAERS Safety Report 23295679 (Version 1)
Quarter: 2023Q4

REPORT INFORMATION
  Report Type: Spontaneous
  Country: US (occurrence: US)
  Receive Date: 20231214
  Receipt Date: 20231214
  Transmission Date: 20240110
  Serious: No
  Sender: FDA-Public Use
  Company Number: US-ALVOGEN-2023092157

PATIENT
  Sex: Female

DRUGS (2)
  1. FENTANYL [Suspect]
     Active Substance: FENTANYL\FENTANYL CITRATE
     Indication: Breast cancer stage IV
     Dosage: ONE BOX?EXPIRATION DATE: MAR-2026.?STRENGTH: 25 MCG/ HR
     Dates: start: 202308
  2. FENTANYL [Suspect]
     Active Substance: FENTANYL\FENTANYL CITRATE
     Indication: Breast cancer stage IV
     Dosage: ANOTHER BOX?EXPIRATION DATE: MAR-2026.?STRENGTH: 25 MCG/ HR
     Dates: start: 202308

REACTIONS (4)
  - Device malfunction [Unknown]
  - Device adhesion issue [Unknown]
  - Wrong technique in device usage process [Unknown]
  - Off label use [Unknown]

NARRATIVE: CASE EVENT DATE: 20230101
